FAERS Safety Report 7020144-8 (Version None)
Quarter: 2010Q3

REPORT INFORMATION
  Report Type: 
  Country: None (occurrence: None)
  Receive Date: 20100929
  Receipt Date: 20100916
  Transmission Date: 20110219
  Serious: Yes (Other)
  Sender: FDA-Public Use
  Company Number: US-ELI_LILLY_AND_COMPANY-US201008005851

PATIENT
  Sex: Male
  Weight: 73.469 kg

DRUGS (12)
  1. EFFIENT [Suspect]
     Indication: STENT PLACEMENT
     Dosage: 10 MG, DAILY (1/D)
  2. EFFIENT [Suspect]
     Dosage: 5 MG, DAILY (1/D)
  3. STARLIX [Concomitant]
     Dosage: 60 MG, 3/D
  4. ZETIA [Concomitant]
     Dosage: 10 MG, DAILY (1/D)
  5. INSPRA [Concomitant]
     Dosage: 25 MG, DAILY (1/D)
  6. MULTAQ [Concomitant]
     Dosage: 400 MG, 2/D
     Dates: end: 20100909
  7. PROSCAR [Concomitant]
     Dosage: 5 MG, DAILY (1/D)
  8. FLOMAX [Concomitant]
     Dosage: 0.4 MG, DAILY (1/D)
  9. LEVOXYL [Concomitant]
     Dosage: 12.5 MG, DAILY (1/D)
  10. XANAX [Concomitant]
     Dosage: 0.5 MG, 3/D
  11. REMERON [Concomitant]
     Dosage: 15 MG, DAILY (1/D)
  12. NITROGLYCERIN [Concomitant]
     Dosage: 0.4 MG, AS NEEDED

REACTIONS (4)
  - DRUG DOSE OMISSION [None]
  - IN-STENT CORONARY ARTERY RESTENOSIS [None]
  - OFF LABEL USE [None]
  - PLATELET AGGREGATION INHIBITION [None]
